FAERS Safety Report 7693939-5 (Version None)
Quarter: 2011Q3

REPORT INFORMATION
  Report Type: 
  Country: None (occurrence: None)
  Receive Date: 20110819
  Receipt Date: 20110811
  Transmission Date: 20111222
  Serious: Yes (Hospitalization, Other)
  Sender: FDA-Public Use
  Company Number: TW-SANOFI-AVENTIS-2011SA051379

PATIENT
  Sex: Male

DRUGS (3)
  1. ELOXATIN [Suspect]
     Indication: COLORECTAL CANCER
     Route: 042
     Dates: end: 20110809
  2. FLUOROURACIL [Concomitant]
     Indication: COLORECTAL CANCER
     Route: 042
  3. LEUCOVORIN CALCIUM [Concomitant]
     Indication: COLORECTAL CANCER
     Route: 042

REACTIONS (2)
  - COMA [None]
  - HYPERAMMONAEMIA [None]
